FAERS Safety Report 10180059 (Version 2)
Quarter: 2014Q2

REPORT INFORMATION
  Report Type: Spontaneous
  Country: US (occurrence: US)
  Receive Date: 20140519
  Receipt Date: 20140519
  Transmission Date: 20141212
  Serious: No
  Sender: FDA-Public Use
  Company Number: US-AMGEN INC.-USASP2013071066

PATIENT
  Age: 71 Year
  Sex: Female
  Weight: 65.76 kg

DRUGS (1)
  1. PROLIA [Suspect]
     Indication: OSTEOPOROSIS POSTMENOPAUSAL
     Dosage: 60 MG/ML, Q6MO
     Route: 058
     Dates: start: 20130918

REACTIONS (9)
  - Oral discomfort [Unknown]
  - Dysgeusia [Unknown]
  - Malaise [Unknown]
  - Nausea [Recovered/Resolved]
  - Paraesthesia oral [Unknown]
  - Tongue exfoliation [Unknown]
  - Oral dysaesthesia [Unknown]
  - Muscle spasms [Recovered/Resolved]
  - Glossodynia [Recovered/Resolved]
